FAERS Safety Report 21989976 (Version 1)
Quarter: 2023Q1

REPORT INFORMATION
  Report Type: Spontaneous
  Country: US (occurrence: US)
  Receive Date: 20230214
  Receipt Date: 20230214
  Transmission Date: 20230417
  Serious: No
  Sender: FDA-Public Use
  Company Number: US-Vifor (International) Inc.-VIT-2023-00213

PATIENT
  Age: 24 Year
  Sex: Male
  Weight: 95 kg

DRUGS (7)
  1. VELPHORO [Suspect]
     Active Substance: SUCROFERRIC OXYHYDROXIDE
     Indication: Product used for unknown indication
     Dosage: 2 TABS WITH MEALS
     Route: 048
     Dates: start: 20220725, end: 20220920
  2. EPOGEN [Concomitant]
     Active Substance: ERYTHROPOIETIN
     Dates: start: 20220828, end: 20221207
  3. EPOGEN [Concomitant]
     Active Substance: ERYTHROPOIETIN
     Route: 058
     Dates: start: 20230106
  4. CEPHALEXIN [Concomitant]
     Active Substance: CEPHALEXIN
     Route: 048
     Dates: start: 20210610
  5. LACTULOSE [Concomitant]
     Active Substance: LACTULOSE
     Route: 048
     Dates: start: 20210517
  6. TERAZOSIN HYDROCHLORIDE [Concomitant]
     Active Substance: TERAZOSIN HYDROCHLORIDE
     Dosage: AT BEDTIME
     Route: 048
     Dates: start: 20210213
  7. TORSEMIDE [Concomitant]
     Active Substance: TORSEMIDE
     Route: 048
     Dates: start: 20210213

REACTIONS (1)
  - Transferrin saturation increased [Recovered/Resolved]

NARRATIVE: CASE EVENT DATE: 20220912
